FAERS Safety Report 6695003-0 (Version None)
Quarter: 2010Q2

REPORT INFORMATION
  Report Type: 
  Country: None (occurrence: None)
  Receive Date: 20100423
  Receipt Date: 20100413
  Transmission Date: 20101027
  Serious: Yes (Other)
  Sender: FDA-Public Use
  Company Number: PHHY2010ES22730

PATIENT
  Age: 57 Year
  Sex: Female

DRUGS (3)
  1. TRILEPTAL [Suspect]
     Indication: MAJOR DEPRESSION
     Dosage: UNK
     Route: 048
     Dates: start: 20050101
  2. DOBUPAL [Suspect]
     Indication: MAJOR DEPRESSION
     Dosage: UNK
     Route: 048
     Dates: start: 20050101
  3. SEROQUEL [Suspect]
     Indication: MAJOR DEPRESSION
     Dosage: UNK
     Route: 048

REACTIONS (2)
  - BRAIN OEDEMA [None]
  - HYPONATRAEMIA [None]
